FAERS Safety Report 13904913 (Version 1)
Quarter: 2017Q3

REPORT INFORMATION
  Report Type: Spontaneous
  Country: US (occurrence: US)
  Receive Date: 20170824
  Receipt Date: 20170824
  Transmission Date: 20171127
  Serious: Yes (Disabling)
  Sender: FDA-Public Use
  Company Number: None

PATIENT
  Age: 37 Year
  Sex: Female
  Weight: 61.2 kg

DRUGS (2)
  1. MIRENA [Suspect]
     Active Substance: LEVONORGESTREL
     Indication: CONTRACEPTION
     Dosage: ?          QUANTITY:1 ALWAYS ON;OTHER FREQUENCY:ALWAYS ON;OTHER ROUTE:INSERTED?
     Route: 067
  2. VITAMINS [Concomitant]
     Active Substance: VITAMINS

REACTIONS (8)
  - Anxiety [None]
  - Back pain [None]
  - Feeling abnormal [None]
  - Depression [None]
  - Nervousness [None]
  - Disturbance in attention [None]
  - Memory impairment [None]
  - Weight increased [None]

NARRATIVE: CASE EVENT DATE: 20150116
